FAERS Safety Report 24035373 (Version 2)
Quarter: 2024Q3

REPORT INFORMATION
  Report Type: Spontaneous
  Country: US (occurrence: None)
  Receive Date: 20240701
  Receipt Date: 20240702
  Transmission Date: 20241016
  Serious: No
  Sender: ASTRAZENECA
  Company Number: 2024A143494

PATIENT

DRUGS (1)
  1. SEROQUEL XR [Suspect]
     Active Substance: QUETIAPINE FUMARATE
     Dosage: 200.0MG UNKNOWN
     Route: 048

REACTIONS (5)
  - Irritability [Unknown]
  - Product coating issue [Unknown]
  - Therapeutic product effect increased [Unknown]
  - Intentional product misuse [Unknown]
  - Therapeutic product effect variable [Unknown]
